FAERS Safety Report 6929091-0 (Version None)
Quarter: 2010Q3

REPORT INFORMATION
  Report Type: 
  Country: None (occurrence: None)
  Receive Date: 20100811
  Receipt Date: 20100805
  Transmission Date: 20110219
  Serious: Yes (Hospitalization, Other)
  Sender: FDA-Public Use
  Company Number: URSO-2010-095

PATIENT
  Age: 67 Year
  Sex: Male

DRUGS (2)
  1. URSODIOL [Suspect]
     Indication: HEPATITIS C
     Dosage: 600MG ORAL
     Route: 048
     Dates: start: 20090107
  2. URSODIOL [Suspect]
     Indication: LIVER DISORDER
     Dosage: 600MG ORAL
     Route: 048
     Dates: start: 20090107

REACTIONS (2)
  - CEREBRAL ARTERY STENOSIS [None]
  - TRANSIENT ISCHAEMIC ATTACK [None]
